FAERS Safety Report 12858806 (Version 1)
Quarter: 2016Q4

REPORT INFORMATION
  Report Type: Report from Study
  Country: None (occurrence: PA)
  Receive Date: 20161018
  Receipt Date: 20161018
  Transmission Date: 20170207
  Serious: Yes (Hospitalization)
  Sender: FDA-Public Use
  Company Number: PA-ABBVIE-16P-125-1754956-00

PATIENT
  Sex: Male

DRUGS (1)
  1. ZEMPLAR [Suspect]
     Active Substance: PARICALCITOL
     Indication: HYPERPARATHYROIDISM SECONDARY
     Dosage: THERAPY IS ADMINISTERED DURING HEMODIALYSIS.
     Route: 042
     Dates: start: 20140101

REACTIONS (1)
  - Device related infection [Not Recovered/Not Resolved]
